FAERS Safety Report 4970941-5 (Version None)
Quarter: 2006Q2

REPORT INFORMATION
  Report Type: 
  Country: None (occurrence: None)
  Receive Date: 20060411
  Receipt Date: 20060411
  Transmission Date: 20061013
  Serious: Yes (Death, Hospitalization)
  Sender: FDA-Public Use
  Company Number: None

PATIENT
  Sex: Male

DRUGS (3)
  1. CELEXA [Suspect]
     Dates: start: 20040601
  2. CITALOPRAM [Suspect]
     Dates: start: 20050701
  3. CITALOPRAM [Suspect]
     Dates: start: 20050801

REACTIONS (9)
  - COMPLETED SUICIDE [None]
  - DEPRESSION [None]
  - DIZZINESS [None]
  - GASTRIC DISORDER [None]
  - MANIA [None]
  - MENTAL DISORDER [None]
  - NAUSEA [None]
  - PARANOIA [None]
  - THINKING ABNORMAL [None]
